FAERS Safety Report 20356032 (Version 2)
Quarter: 2022Q1

REPORT INFORMATION
  Report Type: Spontaneous
  Country: US (occurrence: US)
  Receive Date: 20220120
  Receipt Date: 20220208
  Transmission Date: 20220423
  Serious: Yes (Other)
  Sender: FDA-Public Use
  Company Number: US-SA-SAC20220119000593

PATIENT
  Age: 55 Year
  Sex: Male

DRUGS (6)
  1. DUPIXENT [Suspect]
     Active Substance: DUPILUMAB
     Indication: Chronic rhinosinusitis with nasal polyps
     Dosage: 300 MG, QOW
     Route: 058
     Dates: start: 20220102
  2. CLARITIN [Concomitant]
     Active Substance: LORATADINE
     Dosage: UNK
  3. FLONASE [Concomitant]
     Active Substance: FLUTICASONE PROPIONATE
     Dosage: 1 MG/2 ML AMPUL-NEB
  4. ALLEGRA [FEXOFENADINE HYDROCHLORIDE] [Concomitant]
     Dosage: 10 MG
  5. BUDESONIDE [Concomitant]
     Active Substance: BUDESONIDE
     Dosage: 10 MG
  6. LORATADINE [Concomitant]
     Active Substance: LORATADINE
     Dosage: 10 MG

REACTIONS (7)
  - Eye haemorrhage [Unknown]
  - Ocular hyperaemia [Unknown]
  - Eye pain [Unknown]
  - Ocular discomfort [Unknown]
  - Asthenopia [Unknown]
  - Dry eye [Unknown]
  - COVID-19 [Unknown]

NARRATIVE: CASE EVENT DATE: 20220101
